FAERS Safety Report 14385227 (Version 1)
Quarter: 2018Q1

REPORT INFORMATION
  Report Type: Spontaneous
  Country: US (occurrence: US)
  Receive Date: 20180115
  Receipt Date: 20180115
  Transmission Date: 20180509
  Serious: Yes (Other)
  Sender: FDA-Public Use
  Company Number: US-SA-2017SA000189

PATIENT
  Age: 41 Year
  Sex: Female

DRUGS (14)
  1. TAXOTERE [Suspect]
     Active Substance: DOCETAXEL
     Indication: BREAST CANCER FEMALE
     Route: 051
     Dates: start: 20140616, end: 20140616
  2. MAGIC MOUTHWASH [Concomitant]
     Active Substance: DIPHENHYDRAMINE HYDROCHLORIDE\LIDOCAINE HYDROCHLORIDE\NYSTATIN
  3. SYMBICORT [Concomitant]
     Active Substance: BUDESONIDE\FORMOTEROL FUMARATE DIHYDRATE
  4. NEOSAR [Concomitant]
     Active Substance: CYCLOPHOSPHAMIDE
     Indication: BREAST CANCER FEMALE
  5. ALEVE [Concomitant]
     Active Substance: NAPROXEN SODIUM
  6. DEXAMETHASONE. [Concomitant]
     Active Substance: DEXAMETHASONE
     Route: 065
  7. ACETAMINOPHEN W/HYDROCODONE [Concomitant]
     Active Substance: ACETAMINOPHEN\HYDROCODONE
     Route: 065
  8. PROCHLORPERAZINE MALEATE. [Concomitant]
     Active Substance: PROCHLORPERAZINE MALEATE
     Route: 065
  9. RANITIDINE. [Concomitant]
     Active Substance: RANITIDINE
     Route: 065
  10. TAXOTERE [Suspect]
     Active Substance: DOCETAXEL
     Indication: BREAST CANCER FEMALE
     Route: 051
     Dates: start: 20141104, end: 20141104
  11. ALPRAZOLAM. [Concomitant]
     Active Substance: ALPRAZOLAM
  12. VENTOLIN HFA [Concomitant]
     Active Substance: ALBUTEROL SULFATE
  13. ONDANSETRON HYDROCHLORIDE. [Concomitant]
     Active Substance: ONDANSETRON HYDROCHLORIDE
     Route: 065
  14. LEVAQUIN [Concomitant]
     Active Substance: LEVOFLOXACIN
     Route: 065

REACTIONS (10)
  - Psychological trauma [Unknown]
  - Impaired work ability [Unknown]
  - Alopecia [Recovering/Resolving]
  - Injury [Unknown]
  - Emotional distress [Unknown]
  - Pain [Unknown]
  - Hair texture abnormal [Unknown]
  - Hair colour changes [Unknown]
  - Anxiety [Unknown]
  - Impaired quality of life [Unknown]

NARRATIVE: CASE EVENT DATE: 201406
